FAERS Safety Report 6079493-2 (Version None)
Quarter: 2009Q1

REPORT INFORMATION
  Report Type: 
  Country: None (occurrence: None)
  Receive Date: 20090216
  Receipt Date: 20090206
  Transmission Date: 20090719
  Serious: Yes (Death, Hospitalization)
  Sender: FDA-Public Use
  Company Number: CH-MERCK-0902CHE00005

PATIENT
  Age: 72 Year
  Sex: Female
  Weight: 115 kg

DRUGS (1)
  1. JANUMET [Suspect]
     Indication: TYPE 2 DIABETES MELLITUS
     Route: 048
     Dates: start: 20081013, end: 20081001

REACTIONS (3)
  - INTENTIONAL DRUG MISUSE [None]
  - LEUKAEMIA MONOCYTIC [None]
  - MEDICAL DIET [None]
